FAERS Safety Report 5914708-X (Version None)
Quarter: 2008Q4

REPORT INFORMATION
  Report Type: 
  Country: None (occurrence: None)
  Receive Date: 20081010
  Receipt Date: 20081001
  Transmission Date: 20090506
  Serious: Yes (Other)
  Sender: FDA-Public Use
  Company Number: CO-JNJFOC-20081001018

PATIENT
  Age: 27 Year
  Sex: Female

DRUGS (2)
  1. RISPERDAL [Suspect]
     Indication: IMPULSIVE BEHAVIOUR
     Dosage: 2-3 MG PER DAY
     Route: 065
  2. PIPOTIAZINE [Concomitant]
     Indication: IMPULSIVE BEHAVIOUR

REACTIONS (2)
  - CHOREOATHETOSIS [None]
  - FALL [None]
